FAERS Safety Report 18474980 (Version 3)
Quarter: 2021Q1

REPORT INFORMATION
  Report Type: Spontaneous
  Country: JP (occurrence: JP)
  Receive Date: 20201106
  Receipt Date: 20210112
  Transmission Date: 20210419
  Serious: Yes (Disabling, Other)
  Sender: FDA-Public Use
  Company Number: JP-OTSUKA-2020_026804

PATIENT
  Age: 58 Year
  Sex: Female

DRUGS (5)
  1. DAIMEDIN 3B [Concomitant]
     Indication: PRODUCT USED FOR UNKNOWN INDICATION
     Dosage: 3 CAPSULES/DAY
     Route: 048
     Dates: start: 20201012, end: 20201023
  2. TAKECAB [Concomitant]
     Active Substance: VONOPRAZAN FUMARATE
     Indication: PRODUCT USED FOR UNKNOWN INDICATION
     Dosage: 10 MG, QD
     Route: 048
     Dates: start: 20201022, end: 20201023
  3. ABILIFY [Suspect]
     Active Substance: ARIPIPRAZOLE
     Indication: SCHIZOPHRENIA
     Dosage: 3 ML, BID, MORNING AND EVENING
     Route: 048
     Dates: start: 20201012, end: 20201023
  4. OMEPRAZOLE. [Concomitant]
     Active Substance: OMEPRAZOLE
     Indication: PRODUCT USED FOR UNKNOWN INDICATION
     Dosage: 40 MG, QD
     Route: 042
     Dates: start: 20201019, end: 20201021
  5. FESIN [Concomitant]
     Indication: PRODUCT USED FOR UNKNOWN INDICATION
     Dosage: 40 MG, QD
     Route: 042
     Dates: start: 20201021, end: 20201022

REACTIONS (13)
  - Altered state of consciousness [Unknown]
  - Refeeding syndrome [Unknown]
  - Encephalitis [Recovering/Resolving]
  - Meningitis [Recovering/Resolving]
  - Pneumonia [Recovering/Resolving]
  - Status epilepticus [Unknown]
  - Pneumonia aspiration [Recovering/Resolving]
  - Hypoglycaemia [Recovered/Resolved with Sequelae]
  - Vomiting [Recovered/Resolved]
  - Upper gastrointestinal haemorrhage [Unknown]
  - Altered state of consciousness [Unknown]
  - Anaemia [Recovered/Resolved]
  - Gastrooesophageal reflux disease [Unknown]

NARRATIVE: CASE EVENT DATE: 20201017
